FAERS Safety Report 5367094-0 (Version None)
Quarter: 2007Q2

REPORT INFORMATION
  Report Type: 
  Country: None (occurrence: None)
  Receive Date: 20070620
  Receipt Date: 20070620
  Transmission Date: 20071010
  Serious: Yes (Hospitalization)
  Sender: FDA-Public Use
  Company Number: None

PATIENT
  Age: 59 Year
  Sex: Male

DRUGS (3)
  1. DIDANOSINE [Suspect]
     Indication: HEPATITIS C
     Dosage: 250MG EVERY DAY PO
     Route: 048
     Dates: start: 20060915, end: 20070504
  2. DIDANOSINE [Suspect]
     Indication: HIV INFECTION
     Dosage: 250MG EVERY DAY PO
     Route: 048
     Dates: start: 20060915, end: 20070504
  3. DIDANOSINE [Suspect]
     Indication: SYSTEMIC ANTIVIRAL TREATMENT
     Dosage: 250MG EVERY DAY PO
     Route: 048
     Dates: start: 20060915, end: 20070504

REACTIONS (2)
  - HEPATIC ENZYME INCREASED [None]
  - PANCREATITIS [None]
